FAERS Safety Report 5742299-5 (Version None)
Quarter: 2008Q2

REPORT INFORMATION
  Report Type: 
  Country: None (occurrence: None)
  Receive Date: 20080519
  Receipt Date: 20080515
  Transmission Date: 20081010
  Serious: Yes (Life-Threatening, Hospitalization, Disabling, Other)
  Sender: FDA-Public Use
  Company Number: PHHY2008BR07942

PATIENT
  Age: 74 Year
  Sex: Male

DRUGS (15)
  1. CITALOPRAM HYDROBROMIDE [Concomitant]
     Indication: DEPRESSION
     Dosage: HALF TABLET DAILY
     Route: 048
     Dates: start: 20070701
  2. EXELON [Suspect]
     Indication: DEMENTIA ALZHEIMER'S TYPE
     Dosage: 3 MG, 2 CAPSULES DAILY
     Route: 048
     Dates: start: 20050101
  3. EXELON [Suspect]
     Dosage: 1.5 MG, 2 CAPSULES DAILY
     Route: 048
     Dates: start: 20060101
  4. EXELON [Suspect]
     Dosage: 1.5 MG, 1 CAPSULE
     Route: 048
     Dates: end: 20080510
  5. EXELON [Suspect]
     Dosage: 1 CAPSULE, 1.5 MG
     Route: 048
  6. LASIX [Concomitant]
     Dosage: 1 TABLET DAILY
     Route: 048
  7. ENALAPRIL MALEATE [Concomitant]
     Indication: HYPERTENSION
     Dosage: 1 TABLET DAILY
     Route: 048
  8. OMEPRAZOLE [Concomitant]
     Dosage: 1 TABLET DAILY
     Route: 048
  9. AMLODIPINE [Concomitant]
     Indication: HYPERTENSION
     Dosage: 1 TABLET DAILY
     Route: 048
  10. METFORMIN HCL [Concomitant]
     Indication: DIABETES MELLITUS
     Dosage: 2 TABLETS DAILY
     Route: 048
  11. HALDOL [Concomitant]
     Dosage: 1 TABLET DAILY
     Route: 048
  12. ACETYLSALICYLIC ACID SRT [Concomitant]
     Indication: HYPERTENSION
     Dosage: 1 TABLET DAILY
     Route: 048
  13. DOXAZOSIN MESYLATE [Concomitant]
     Dosage: 1 TABLET DAILY
     Route: 048
     Dates: start: 20020101
  14. ISOSORBIDE DINITRATE [Concomitant]
     Indication: CARDIAC DISORDER
     Dosage: 1 TABLET DAILY
     Route: 048
  15. MINIPRESS [Concomitant]
     Indication: CARDIAC DISORDER
     Dosage: 1 TABLET DAILY
     Route: 048

REACTIONS (11)
  - ABASIA [None]
  - ABNORMAL BEHAVIOUR [None]
  - ACTIVITIES OF DAILY LIVING IMPAIRED [None]
  - BEDRIDDEN [None]
  - CARDIAC DISORDER [None]
  - CARDIAC PACEMAKER INSERTION [None]
  - DELIRIUM [None]
  - MECHANICAL VENTILATION [None]
  - MOBILITY DECREASED [None]
  - RESPIRATORY ARREST [None]
  - TREATMENT NONCOMPLIANCE [None]
